FAERS Safety Report 22209172 (Version 2)
Quarter: 2023Q2

REPORT INFORMATION
  Report Type: Report from Study
  Country: US (occurrence: US)
  Receive Date: 20230413
  Receipt Date: 20230518
  Transmission Date: 20230722
  Serious: Yes (Other)
  Sender: FDA-Public Use
  Company Number: US-JAZZ PHARMACEUTICALS-2023-US-008344

PATIENT
  Sex: Female

DRUGS (6)
  1. XYREM [Suspect]
     Active Substance: SODIUM OXYBATE
     Indication: Narcolepsy
     Dosage: UNK
  2. XYREM [Suspect]
     Active Substance: SODIUM OXYBATE
     Indication: Cataplexy
  3. XYREM [Suspect]
     Active Substance: SODIUM OXYBATE
     Indication: Somnolence
  4. ELMIRON [Suspect]
     Active Substance: PENTOSAN POLYSULFATE SODIUM
     Indication: Product used for unknown indication
  5. FENUGREEK LEAF\HERBALS [Concomitant]
     Active Substance: FENUGREEK LEAF\HERBALS
     Indication: Bladder disorder
     Dosage: UNK
     Dates: start: 20161101
  6. BIOTIN [Concomitant]
     Active Substance: BIOTIN
     Indication: Product used for unknown indication
     Dosage: UNK
     Dates: start: 20170601

REACTIONS (6)
  - Knee operation [Unknown]
  - Blood cholesterol increased [Recovered/Resolved]
  - Hepatic enzyme increased [Unknown]
  - Urinary tract infection [Unknown]
  - Cystitis [Unknown]
  - Intentional dose omission [Unknown]
